FAERS Safety Report 8491722 (Version 2)
Quarter: 2013Q1

REPORT INFORMATION
  Report Type: Spontaneous
  Country: US (occurrence: US)
  Receive Date: 20120403
  Receipt Date: 20130307
  Transmission Date: 20140127
  Serious: Yes (Death, Disabling, Other)
  Sender: FDA-Public Use
  Company Number: US-TEVA-330740USA

PATIENT
  Sex: Female

DRUGS (4)
  1. METOCLOPRAMIDE [Suspect]
     Indication: ABDOMINAL DISTENSION
  2. METOCLOPRAMIDE [Suspect]
     Indication: DYSPEPSIA
  3. METOCLOPRAMIDE [Suspect]
     Indication: DYSPEPSIA
  4. METOCLOPRAMIDE [Suspect]
     Indication: ABDOMINAL DISTENSION

REACTIONS (3)
  - Tardive dyskinesia [Fatal]
  - Nervous system disorder [Fatal]
  - Extrapyramidal disorder [Fatal]
